FAERS Safety Report 5029787-4 (Version None)
Quarter: 2006Q2

REPORT INFORMATION
  Report Type: 
  Country: None (occurrence: None)
  Receive Date: 20060620
  Receipt Date: 20060609
  Transmission Date: 20061013
  Serious: Yes (Hospitalization)
  Sender: FDA-Public Use
  Company Number: DE-ROCHE-451239

PATIENT
  Age: 65 Year
  Sex: Male

DRUGS (30)
  1. MYCOPHENOLATE MOFETIL [Suspect]
     Route: 042
     Dates: start: 20041002, end: 20041006
  2. MYCOPHENOLATE MOFETIL [Suspect]
     Route: 048
     Dates: start: 20041007, end: 20050519
  3. MYCOPHENOLATE MOFETIL [Suspect]
     Route: 048
     Dates: start: 20050520
  4. TACROLIMUS [Suspect]
     Route: 042
     Dates: start: 20041002, end: 20041002
  5. TACROLIMUS [Suspect]
     Dosage: ADJUSTMENT TO REACH PREDEFINED TARGET LEVELS.
     Route: 048
     Dates: start: 20041003
  6. METHYLPREDNISOLONE [Suspect]
     Dosage: TAPERED ACCORDING TO LOCAL PROTOCOL
     Route: 065
     Dates: start: 20041002, end: 20050519
  7. ITRACONAZOL [Concomitant]
     Indication: ANTIFUNGAL PROPHYLAXIS
     Dates: start: 20041001
  8. BLOOD, PACKED RED CELLS [Concomitant]
     Dates: start: 20041001
  9. INSULIN, HUMAN [Concomitant]
     Indication: DIABETES MELLITUS
     Dates: start: 20041001
  10. POTASSIUM [Concomitant]
     Dates: start: 20041001, end: 20041004
  11. CEFUROXIME [Concomitant]
     Indication: INFECTION PROPHYLAXIS
     Dates: start: 20041001, end: 20041004
  12. CLONIDIN [Concomitant]
     Dates: start: 20041001, end: 20041004
  13. ALBUMIN (HUMAN) [Concomitant]
     Dates: start: 20041001, end: 20041004
  14. SDD SUSPENSION [Concomitant]
     Dates: start: 20041001, end: 20041004
  15. NYSTATIN [Concomitant]
     Indication: ANTIFUNGAL PROPHYLAXIS
     Dates: start: 20041002
  16. HEXETIDIN [Concomitant]
     Indication: INFECTION PROPHYLAXIS
     Dates: start: 20041002
  17. SULFAMETHOXAZOLE + TRIMETHOPRIM [Concomitant]
     Indication: INFECTION PROPHYLAXIS
     Dates: start: 20041003
  18. PHYTOMENADION [Concomitant]
     Indication: PROPHYLAXIS
     Dates: start: 20041001, end: 20041008
  19. LASIX [Concomitant]
     Indication: ASCITES
     Dates: start: 20041002, end: 20041007
  20. ACETAMINOPHEN [Concomitant]
     Indication: ANALGESIC THERAPY
     Dates: start: 20041002, end: 20041007
  21. TURIXIN SALBE [Concomitant]
     Indication: INFECTION PROPHYLAXIS
     Dates: start: 20041001, end: 20041004
  22. ZANTAC [Concomitant]
     Dates: start: 20041001, end: 20041004
  23. DIPIDOLOR [Concomitant]
     Dates: start: 20041002, end: 20041003
  24. PANTOZOL [Concomitant]
     Indication: GASTROOESOPHAGEAL REFLUX PROPHYLAXIS
     Dates: start: 20041004, end: 20041007
  25. PASPERTIN [Concomitant]
     Dates: start: 20041004, end: 20041008
  26. ACC [Concomitant]
     Dates: start: 20041004, end: 20041006
  27. FRAGMIN [Concomitant]
     Dates: start: 20041004, end: 20041007
  28. NOVALGIN [Concomitant]
     Indication: PAIN
     Dates: start: 20041006, end: 20041010
  29. CLEXANE [Concomitant]
     Indication: THROMBOSIS PROPHYLAXIS
     Dates: start: 20041008, end: 20041019
  30. LANTUS [Concomitant]
     Indication: DIABETES MELLITUS
     Dates: start: 20041015

REACTIONS (1)
  - TRANSIENT ISCHAEMIC ATTACK [None]
